FAERS Safety Report 7890914-2 (Version None)
Quarter: 2011Q4

REPORT INFORMATION
  Report Type: 
  Country: None (occurrence: None)
  Receive Date: 20111103
  Receipt Date: 20111025
  Transmission Date: 20120403
  Serious: Yes (Hospitalization, Other)
  Sender: FDA-Public Use
  Company Number: BR-ASTRAZENECA-2011SE64731

PATIENT
  Age: 37 Year
  Sex: Male

DRUGS (7)
  1. METOPROLOL SUCCINATE [Suspect]
     Route: 048
  2. ATACAND [Suspect]
     Route: 048
  3. WARFARIN SODIUM [Suspect]
     Route: 065
  4. COUMADIM [Suspect]
     Route: 065
  5. SPIRONOLACTONE [Suspect]
     Route: 065
  6. DIGOXIN [Concomitant]
  7. FUROSEMIDE [Concomitant]

REACTIONS (5)
  - ACUTE PULMONARY OEDEMA [None]
  - SINUS TACHYCARDIA [None]
  - CARDIAC FAILURE CONGESTIVE [None]
  - HYPERTENSION [None]
  - INAPPROPRIATE SCHEDULE OF DRUG ADMINISTRATION [None]
